FAERS Safety Report 23032145 (Version 2)
Quarter: 2023Q4

REPORT INFORMATION
  Report Type: Spontaneous
  Country: IL (occurrence: IL)
  Receive Date: 20231005
  Receipt Date: 20231021
  Transmission Date: 20240110
  Serious: Yes (Life-Threatening, Hospitalization, Other)
  Sender: FDA-Public Use
  Company Number: IL-UNITED THERAPEUTICS-UNT-2023-024662

PATIENT
  Sex: Female
  Weight: 83 kg

DRUGS (3)
  1. REMODULIN [Suspect]
     Active Substance: TREPROSTINIL
     Indication: Pulmonary arterial hypertension
     Dosage: UNK (AT INFUSION RATE OF 0.002 ML/HR), CONTINUING
     Route: 058
     Dates: end: 20230831
  2. REMODULIN [Suspect]
     Active Substance: TREPROSTINIL
     Dosage: UNK (AT INFUSION RATE OF 0.010 ML/HR), CONTINUING
     Route: 058
     Dates: start: 20230920
  3. REMODULIN [Suspect]
     Active Substance: TREPROSTINIL
     Dosage: UNK, CONTINUING
     Route: 058
     Dates: end: 20231010

REACTIONS (6)
  - Respiratory failure [Unknown]
  - Pneumonia aspiration [Unknown]
  - Blood pressure decreased [Recovered/Resolved]
  - Anuria [Recovered/Resolved]
  - Septic shock [Recovering/Resolving]
  - Device related sepsis [Recovering/Resolving]

NARRATIVE: CASE EVENT DATE: 20230101
